FAERS Safety Report 6413518-7 (Version None)
Quarter: 2009Q4

REPORT INFORMATION
  Report Type: 
  Country: None (occurrence: None)
  Receive Date: 20091020
  Receipt Date: 20091009
  Transmission Date: 20100525
  Serious: Yes (Other)
  Sender: FDA-Public Use
  Company Number: GXKR2009IL11162

PATIENT
  Age: 19 Year
  Sex: Female

DRUGS (2)
  1. FLUOXETINE [Suspect]
     Indication: ANXIETY
  2. METOCLOPRAMIDE [Suspect]
     Indication: VOMITING

REACTIONS (3)
  - ABDOMINAL PAIN [None]
  - HYPOTENSION [None]
  - SEROTONIN SYNDROME [None]
